FAERS Safety Report 25795663 (Version 1)
Quarter: 2025Q3

REPORT INFORMATION
  Report Type: Spontaneous
  Country: US (occurrence: None)
  Receive Date: 20250912
  Receipt Date: 20250912
  Transmission Date: 20251021
  Serious: Yes (Hospitalization)
  Sender: FDA-CTU
  Company Number: None

PATIENT
  Age: 84 Year
  Sex: Male
  Weight: 102.4 kg

DRUGS (10)
  1. TICE BCG [Suspect]
     Active Substance: BACILLUS CALMETTE-GUERIN SUBSTRAIN TICE LIVE ANTIGEN
     Dates: end: 20250312
  2. Acyclovir 400 mg tab BID [Concomitant]
  3. Darzalex Faspro - Daratumumab weekly [Concomitant]
  4. Dexamethasone 4 mg- 5 tabs [Concomitant]
  5. Finastaride [Concomitant]
  6. HCTZ 25 mg daily [Concomitant]
  7. Irbezartan 150 mg [Concomitant]
  8. Revlimid - Lenalidomide 25 mg daily [Concomitant]
  9. ROSUVASTATIN [Concomitant]
     Active Substance: ROSUVASTATIN
  10. Velcade - Bortezomib injection 15 ml weekly [Concomitant]

REACTIONS (14)
  - Febrile neutropenia [None]
  - Pain in extremity [None]
  - Sepsis [None]
  - Arthralgia [None]
  - Asthenia [None]
  - Cellulitis [None]
  - Limb injury [None]
  - Deep vein thrombosis [None]
  - Pseudomonal bacteraemia [None]
  - Haemoglobin decreased [None]
  - Platelet count decreased [None]
  - Blood potassium decreased [None]
  - Troponin I increased [None]
  - Hypotension [None]

NARRATIVE: CASE EVENT DATE: 20250827
